FAERS Safety Report 15394158 (Version 1)
Quarter: 2018Q3

REPORT INFORMATION
  Report Type: Report from Study
  Country: US (occurrence: US)
  Receive Date: 20180918
  Receipt Date: 20180918
  Transmission Date: 20181010
  Serious: Yes (Death, Other)
  Sender: FDA-Public Use
  Company Number: US-AUROBINDO-AUR-APL-2018-045737

PATIENT
  Age: 77 Year
  Sex: Male

DRUGS (1)
  1. METOPROLOL. [Suspect]
     Active Substance: METOPROLOL
     Indication: PRODUCT USED FOR UNKNOWN INDICATION
     Dosage: UNK
     Route: 065

REACTIONS (6)
  - Hypotension [Fatal]
  - Respiratory depression [Fatal]
  - Bradycardia [Fatal]
  - Atrioventricular block [Fatal]
  - Coma [Fatal]
  - Depressed level of consciousness [Fatal]
